FAERS Safety Report 6795788-9 (Version None)
Quarter: 2010Q2

REPORT INFORMATION
  Report Type: 
  Country: None (occurrence: None)
  Receive Date: 20100625
  Receipt Date: 20100617
  Transmission Date: 20101027
  Serious: Yes (Hospitalization)
  Sender: FDA-Public Use
  Company Number: GXKR2010DO06867

PATIENT
  Sex: Female

DRUGS (2)
  1. BISOPRODOL FUMARATE [Suspect]
     Dosage: 5 MG, UNK
     Route: 065
  2. RASILEZ (ALISKIREN) [Interacting]
     Dosage: UNK
     Route: 065

REACTIONS (2)
  - BRADYCARDIA [None]
  - DRUG INTERACTION [None]
